FAERS Safety Report 16664098 (Version 1)
Quarter: 2019Q3

REPORT INFORMATION
  Report Type: Spontaneous
  Country: US (occurrence: US)
  Receive Date: 20190802
  Receipt Date: 20190802
  Transmission Date: 20191004
  Serious: No
  Sender: FDA-Public Use
  Company Number: US-BAUSCH-BL-2019-020593

PATIENT
  Age: 64 Year
  Sex: Female

DRUGS (3)
  1. OPCON-A [Suspect]
     Active Substance: NAPHAZOLINE HYDROCHLORIDE\PHENIRAMINE MALEATE
     Indication: EYE ALLERGY
     Route: 047
  2. OPCON-A [Suspect]
     Active Substance: NAPHAZOLINE HYDROCHLORIDE\PHENIRAMINE MALEATE
     Dosage: 1 DROP IN BOTH EYES AS NEEDED 1 TO 2 TIMES DAILY (SECOND BOTTLE IN THE TWIN PACK)
     Route: 047
     Dates: start: 201906, end: 20190716
  3. OPCON-A [Suspect]
     Active Substance: NAPHAZOLINE HYDROCHLORIDE\PHENIRAMINE MALEATE
     Dosage: 1 DROP IN BOTH EYES AS NEEDED 1 TO 2 TIMES DAILY (FIRST BOTTLE IN THE TWIN PACK)
     Route: 047
     Dates: start: 2019, end: 2019

REACTIONS (3)
  - Product contamination [Unknown]
  - Eyelids pruritus [Unknown]
  - Hordeolum [Not Recovered/Not Resolved]

NARRATIVE: CASE EVENT DATE: 2019
